FAERS Safety Report 9407706 (Version 4)
Quarter: 2013Q3

REPORT INFORMATION
  Report Type: Spontaneous
  Country: JP (occurrence: JP)
  Receive Date: 20130718
  Receipt Date: 20130828
  Transmission Date: 20140515
  Serious: Yes (Death, Hospitalization, Other)
  Sender: FDA-Public Use
  Company Number: JP-TEVA-419970USA

PATIENT
  Age: 49 Year
  Sex: Male

DRUGS (7)
  1. BENDAMUSTINE [Suspect]
     Indication: B-CELL LYMPHOMA
     Dosage: CYCLE 1 UID/QD
     Route: 042
     Dates: start: 20110606, end: 20110607
  2. BENDAMUSTINE [Suspect]
     Dosage: CYCLE 2 UID/QD
     Route: 042
     Dates: start: 20110704, end: 20110705
  3. BENDAMUSTINE [Suspect]
     Dosage: CYCLE 3 UID/QD
     Route: 042
     Dates: start: 20110803, end: 20110804
  4. BENDAMUSTINE [Suspect]
     Dosage: CYCLE 4 UID/QD
     Route: 042
     Dates: start: 20110830, end: 20110831
  5. BENDAMUSTINE [Suspect]
     Dosage: CYCLE 5 UID/QD
     Route: 042
     Dates: start: 20111004, end: 20111005
  6. BENDAMUSTINE [Suspect]
     Dosage: CYCLE 6 UNKNOWN/D
     Route: 042
     Dates: start: 20111101, end: 20111120
  7. RITUXIMAB [Concomitant]
     Indication: B-CELL LYMPHOMA

REACTIONS (3)
  - Cystitis haemorrhagic [Recovered/Resolved]
  - Aspergillus infection [Fatal]
  - Cytomegalovirus infection [Recovered/Resolved]
